FAERS Safety Report 5679358-1 (Version None)
Quarter: 2008Q1

REPORT INFORMATION
  Report Type: 
  Country: None (occurrence: None)
  Receive Date: 20080325
  Receipt Date: 20080313
  Transmission Date: 20080703
  Serious: Yes (Other)
  Sender: FDA-Public Use
  Company Number: JP-PFIZER INC-2008026210

PATIENT
  Sex: Male

DRUGS (7)
  1. CAMPTO [Suspect]
     Indication: NON-SMALL CELL LUNG CANCER
     Dosage: DAILY DOSE:145MG
     Route: 042
     Dates: start: 20050519, end: 20060228
  2. ENALAPRIL MALEATE [Concomitant]
     Indication: HYPERTENSION
     Route: 048
  3. LOPERAMIDE HYDROCHLORIDE [Concomitant]
     Route: 048
  4. ALL OTHER THERAPEUTIC PRODUCTS [Concomitant]
     Indication: DIARRHOEA
     Route: 048
  5. URSO 250 [Concomitant]
     Indication: DIARRHOEA
     Route: 048
  6. SODIUM BICARBONATE [Concomitant]
     Indication: DIARRHOEA
     Route: 048
  7. HANGE-SHASHIN-TO [Concomitant]
     Indication: DIARRHOEA
     Route: 048

REACTIONS (4)
  - BLOOD POTASSIUM INCREASED [None]
  - HAEMOGLOBIN DECREASED [None]
  - NEUTROPHIL COUNT DECREASED [None]
  - WHITE BLOOD CELL COUNT DECREASED [None]
